FAERS Safety Report 7097087-7 (Version None)
Quarter: 2010Q4

REPORT INFORMATION
  Report Type: 
  Country: None (occurrence: None)
  Receive Date: 20101111
  Receipt Date: 20101108
  Transmission Date: 20110411
  Serious: No
  Sender: FDA-Public Use
  Company Number: US-TEVA-254467USA

PATIENT
  Sex: Female

DRUGS (3)
  1. COPAXONE [Suspect]
     Route: 058
  2. AMPYRA [Suspect]
     Indication: PRODUCT USED FOR UNKNOWN INDICATION
  3. NATALIZUMAB [Concomitant]
     Dates: start: 20070913, end: 20090806

REACTIONS (1)
  - DRUG INEFFECTIVE [None]
